FAERS Safety Report 4738904-2 (Version None)
Quarter: 2005Q3

REPORT INFORMATION
  Report Type: 
  Country: None (occurrence: None)
  Receive Date: 20050809
  Receipt Date: 20050705
  Transmission Date: 20060218
  Serious: Yes (Hospitalization, Other)
  Sender: FDA-Public Use
  Company Number: US-MERCK-0507USA00565

PATIENT
  Age: 49 Year
  Sex: Male
  Weight: 84 kg

DRUGS (3)
  1. VIOXX [Suspect]
     Route: 048
     Dates: start: 20010101, end: 20020101
  2. ATACAND [Concomitant]
     Indication: BLOOD PRESSURE
     Route: 065
  3. PLAVIX [Concomitant]
     Indication: BLOOD PRESSURE
     Route: 065

REACTIONS (2)
  - CEREBROVASCULAR ACCIDENT [None]
  - HAEMORRHAGE [None]
